FAERS Safety Report 5131451-8 (Version None)
Quarter: 2006Q4

REPORT INFORMATION
  Report Type: 
  Country: None (occurrence: None)
  Receive Date: 20061016
  Receipt Date: 20061002
  Transmission Date: 20070319
  Serious: Yes (Hospitalization)
  Sender: FDA-Public Use
  Company Number: 2006SS000073

PATIENT
  Sex: Male

DRUGS (2)
  1. MYOBLOC [Suspect]
     Indication: OFF LABEL USE
     Dosage: 100 UNITS; INTRAMUSCULAR
     Route: 030
  2. MYOBLOC [Suspect]
     Indication: SALIVARY HYPERSECRETION
     Dosage: 100 UNITS; INTRAMUSCULAR
     Route: 030

REACTIONS (8)
  - COGNITIVE DISORDER [None]
  - CONDITION AGGRAVATED [None]
  - GINGIVAL DISORDER [None]
  - HEADACHE [None]
  - OFF LABEL USE [None]
  - PARKINSON'S DISEASE [None]
  - PAROTITIS [None]
  - VENOUS THROMBOSIS [None]
